FAERS Safety Report 5923158-1 (Version None)
Quarter: 2008Q4

REPORT INFORMATION
  Report Type: 
  Country: None (occurrence: None)
  Receive Date: 20081020
  Receipt Date: 20081008
  Transmission Date: 20090506
  Serious: Yes (Hospitalization)
  Sender: FDA-Public Use
  Company Number: US-JNJFOC-20081002842

PATIENT
  Sex: Female
  Weight: 89.81 kg

DRUGS (10)
  1. DURAGESIC-100 [Suspect]
     Route: 062
  2. DURAGESIC-100 [Suspect]
     Route: 062
  3. DURAGESIC-100 [Suspect]
     Indication: PAIN
     Route: 062
  4. TOPAMAX [Concomitant]
     Indication: DEPRESSION
     Route: 048
  5. PREVACID [Concomitant]
     Indication: ABDOMINAL PAIN UPPER
     Route: 048
  6. WELLBUTRIN SR [Concomitant]
     Indication: DEPRESSION
     Route: 048
  7. EFFEXOR [Concomitant]
     Indication: DEPRESSION
     Route: 048
  8. PROVIGIL [Concomitant]
     Route: 048
  9. OXYCODONE HCL [Concomitant]
     Indication: BREAKTHROUGH PAIN
     Route: 048
  10. FUROSENIDE [Concomitant]
     Indication: OEDEMA PERIPHERAL
     Route: 048

REACTIONS (5)
  - APPLICATION SITE ERYTHEMA [None]
  - ARTHRITIS [None]
  - CHOLELITHIASIS [None]
  - PNEUMONIA PRIMARY ATYPICAL [None]
  - WRONG TECHNIQUE IN DRUG USAGE PROCESS [None]
